FAERS Safety Report 14071714 (Version 4)
Quarter: 2018Q2

REPORT INFORMATION
  Report Type: Spontaneous
  Country: US (occurrence: US)
  Receive Date: 20171010
  Receipt Date: 20180419
  Transmission Date: 20180711
  Serious: Yes (Other)
  Sender: FDA-Public Use
  Company Number: US-SA-2017SA152119

PATIENT
  Age: 46 Year
  Sex: Female

DRUGS (8)
  1. DUPIXENT [Suspect]
     Active Substance: DUPILUMAB
     Indication: PRODUCT USED FOR UNKNOWN INDICATION
     Route: 058
     Dates: start: 20170725
  2. MOTRIN [Concomitant]
     Active Substance: IBUPROFEN
  3. DUPIXENT [Suspect]
     Active Substance: DUPILUMAB
     Indication: PRODUCT USED FOR UNKNOWN INDICATION
     Route: 058
     Dates: start: 20170712
  4. RESTASIS [Concomitant]
     Active Substance: CYCLOSPORINE
  5. BENADRYL [Concomitant]
     Active Substance: DIPHENHYDRAMINE HYDROCHLORIDE
     Route: 065
  6. DUPIXENT [Suspect]
     Active Substance: DUPILUMAB
     Indication: PSORIASIS
     Route: 058
     Dates: start: 20170725
  7. DUPIXENT [Suspect]
     Active Substance: DUPILUMAB
     Indication: PSORIASIS
     Route: 058
     Dates: start: 20170712
  8. TACROLIMUS. [Concomitant]
     Active Substance: TACROLIMUS

REACTIONS (21)
  - Thyroid neoplasm [Unknown]
  - Erythema [Unknown]
  - Eye swelling [Unknown]
  - Skin atrophy [Unknown]
  - Nasopharyngitis [Unknown]
  - Skin exfoliation [Unknown]
  - Headache [Unknown]
  - Platelet count increased [Unknown]
  - Product use in unapproved indication [Unknown]
  - Eye inflammation [Unknown]
  - Skin exfoliation [Unknown]
  - Urticaria [Unknown]
  - Lymphadenopathy [Unknown]
  - Eye discharge [Unknown]
  - Nail disorder [Unknown]
  - Alopecia [Unknown]
  - Pruritus [Unknown]
  - Swelling [Unknown]
  - Arthralgia [Unknown]
  - Skin wrinkling [Unknown]
  - Eczema [Unknown]

NARRATIVE: CASE EVENT DATE: 2017
